FAERS Safety Report 23341061 (Version 1)
Quarter: 2023Q4

REPORT INFORMATION
  Report Type: Spontaneous
  Country: JP (occurrence: JP)
  Receive Date: 20231227
  Receipt Date: 20231227
  Transmission Date: 20240110
  Serious: Yes (Other)
  Sender: FDA-Public Use
  Company Number: JP-TEVA-VS-3137604

PATIENT
  Age: 70 Year

DRUGS (1)
  1. PREDNISOLONE [Suspect]
     Active Substance: PREDNISOLONE
     Indication: Microscopic polyangiitis
     Dosage: DOSAGE IS UNKNOWN
     Route: 048
     Dates: start: 202207

REACTIONS (5)
  - Suicidal ideation [Unknown]
  - Oral candidiasis [Unknown]
  - Ageusia [Unknown]
  - Tongue coated [Unknown]
  - Dysgeusia [Unknown]

NARRATIVE: CASE EVENT DATE: 20220101
